FAERS Safety Report 5893960-3 (Version None)
Quarter: 2008Q3

REPORT INFORMATION
  Report Type: 
  Country: None (occurrence: None)
  Receive Date: 20080923
  Receipt Date: 20080915
  Transmission Date: 20090109
  Serious: Yes (Other)
  Sender: FDA-Public Use
  Company Number: RU-B.I. PHARMACEUTICALS,INC./RIDGEFIELD-2008-DE-04695DE

PATIENT
  Sex: Male
  Weight: 74 kg

DRUGS (5)
  1. TIOTROPIUM-BROMIDE [Suspect]
     Indication: CHRONIC OBSTRUCTIVE PULMONARY DISEASE
     Dosage: 18MCG
     Route: 055
     Dates: end: 20080719
  2. ALBUTEROL SPIROS [Concomitant]
     Indication: CHRONIC OBSTRUCTIVE PULMONARY DISEASE
     Dosage: 800MCG
     Route: 055
     Dates: start: 19960101
  3. ISOSORBIDE DINITRATE [Concomitant]
     Indication: MYOCARDIAL ISCHAEMIA
     Dosage: 40MG
     Route: 048
     Dates: start: 19920101
  4. ACETYLSALICYLIC ACID SRT [Concomitant]
     Indication: MYOCARDIAL ISCHAEMIA
     Dosage: 100MG
     Route: 048
     Dates: start: 19920101
  5. PENTOXIFYLLINE [Concomitant]
     Indication: ARTERIOSCLEROSIS
     Dosage: 100MG
     Route: 048
     Dates: start: 19920101

REACTIONS (2)
  - HYPOTENSION [None]
  - SYNCOPE [None]
